FAERS Safety Report 5677729-0 (Version None)
Quarter: 2008Q1

REPORT INFORMATION
  Report Type: 
  Country: None (occurrence: None)
  Receive Date: 20080318
  Receipt Date: 20080306
  Transmission Date: 20080703
  Serious: Yes (Hospitalization)
  Sender: FDA-Public Use
  Company Number: TPG2008A00158

PATIENT
  Age: 69 Year
  Sex: Female

DRUGS (4)
  1. COMPETACT (PIOGLITAZONE HYDROCHLORIDE, METFORMIN HYDROCHLORIDE) [Suspect]
     Indication: DIABETES MELLITUS
     Dosage: PIOGLITAZONE 15 MG, PER ORAL, METFORMIN 850 MG
     Route: 048
     Dates: start: 20080206, end: 20080206
  2. ACE INHIBITOR NOS (ACE INHIBITOR NOS) [Concomitant]
  3. L-THYROXINE (LEVOTHYROXINE) [Concomitant]
  4. GLIMEPIRIDE [Concomitant]

REACTIONS (4)
  - DIABETES MELLITUS INADEQUATE CONTROL [None]
  - GLYCOSYLATED HAEMOGLOBIN INCREASED [None]
  - HYPERTENSIVE CRISIS [None]
  - MICROALBUMINURIA [None]
